FAERS Safety Report 10531141 (Version 2)
Quarter: 2014Q4

REPORT INFORMATION
  Report Type: Spontaneous
  Country: FR (occurrence: FR)
  Receive Date: 20141021
  Receipt Date: 20141030
  Transmission Date: 20150529
  Serious: Yes (Hospitalization)
  Sender: FDA-Public Use
  Company Number: FR-PFIZER INC-2014282467

PATIENT
  Age: 40 Year
  Sex: Female

DRUGS (8)
  1. XEROQUEL [Suspect]
     Active Substance: QUETIAPINE FUMARATE
     Dosage: 300 MG, DAILY
     Route: 048
  2. XYZALL [Concomitant]
     Active Substance: LEVOCETIRIZINE DIHYDROCHLORIDE
     Dosage: ONE TABLET DAILY
  3. XANAX [Suspect]
     Active Substance: ALPRAZOLAM
     Dosage: 20 MG (40 TABLETS), SINGLE
     Route: 048
     Dates: start: 20140916, end: 20140916
  4. PROPANOLOL [Suspect]
     Active Substance: PROPRANOLOL HYDROCHLORIDE
     Dosage: 40 MG, DAILY
  5. PROPANOLOL [Suspect]
     Active Substance: PROPRANOLOL HYDROCHLORIDE
     Dosage: 680 MG (17 TABLETS ), SINGLE
     Dates: start: 20140916, end: 20140916
  6. XEROQUEL [Suspect]
     Active Substance: QUETIAPINE FUMARATE
     Dosage: 3000 MG (10 TABLETS), SINGLE
     Route: 048
     Dates: start: 20140916, end: 20140916
  7. LEVOTHYROX [Concomitant]
     Active Substance: LEVOTHYROXINE
     Dosage: 125 UG, DAILY
  8. XANAX [Suspect]
     Active Substance: ALPRAZOLAM
     Dosage: 0.5 MG, DAILY
     Route: 048

REACTIONS (4)
  - Suicide attempt [Recovered/Resolved]
  - Coma [Recovered/Resolved]
  - Hypotension [Recovered/Resolved]
  - Bradycardia [Recovered/Resolved]

NARRATIVE: CASE EVENT DATE: 20140916
